FAERS Safety Report 24083872 (Version 1)
Quarter: 2024Q3

REPORT INFORMATION
  Report Type: Spontaneous
  Country: GB (occurrence: None)
  Receive Date: 20240712
  Receipt Date: 20240712
  Transmission Date: 20241016
  Serious: Yes (Other)
  Sender: ASTRAZENECA
  Company Number: 2024A154069

PATIENT
  Sex: Male

DRUGS (5)
  1. DAPAGLIFLOZIN [Suspect]
     Active Substance: DAPAGLIFLOZIN
     Indication: Cardiac failure
     Dosage: 10MG ONCE DAILY
  2. EPLERENONE [Concomitant]
     Active Substance: EPLERENONE
     Indication: Cardiac failure
  3. RAMIPRIL [Concomitant]
     Active Substance: RAMIPRIL
     Indication: Cardiac failure
  4. BISOPROLOL [Concomitant]
     Active Substance: BISOPROLOL\BISOPROLOL FUMARATE
  5. ASPIRIN [Concomitant]
     Active Substance: ASPIRIN

REACTIONS (1)
  - Depressed mood [Recovering/Resolving]
